FAERS Safety Report 8929394 (Version 1)
Quarter: 2012Q4

REPORT INFORMATION
  Report Type: Report from Study
  Country: US (occurrence: US)
  Receive Date: 20121127
  Receipt Date: 20121127
  Transmission Date: 20130627
  Serious: Yes (Other)
  Sender: FDA-Public Use
  Company Number: US-ASTELLAS-2012US011477

PATIENT

DRUGS (3)
  1. ERLOTINIB TABLET [Suspect]
     Indication: MALIGNANT GLIOMA
     Dosage: 150 mg, UID/QD
     Route: 048
  2. SIROLIMUS [Suspect]
     Indication: MALIGNANT GLIOMA
     Dosage: 5 mg, tid loading dose
     Route: 048
  3. SIROLIMUS [Suspect]
     Dosage: 5 mg, UID/QD
     Route: 048

REACTIONS (2)
  - Off label use [Unknown]
  - Thrombocytopenia [Unknown]
